FAERS Safety Report 16096685 (Version 1)
Quarter: 2019Q1

REPORT INFORMATION
  Report Type: Spontaneous
  Country: US (occurrence: US)
  Receive Date: 20190320
  Receipt Date: 20190320
  Transmission Date: 20190418
  Serious: No
  Sender: FDA-Public Use
  Company Number: US-PFIZER INC-2019118663

PATIENT
  Age: 60 Year
  Sex: Female

DRUGS (1)
  1. IBRANCE [Suspect]
     Active Substance: PALBOCICLIB
     Indication: BREAST CANCER FEMALE
     Dosage: 100 MG, CYCLIC (DAILY, FOR 21 DAYS THEN OFF, FOR 7 DAY EVERY 28 DAYS)
     Route: 048
     Dates: start: 201902

REACTIONS (2)
  - Fatigue [Unknown]
  - Thirst [Unknown]
